FAERS Safety Report 14609930 (Version 1)
Quarter: 2018Q1

REPORT INFORMATION
  Report Type: Spontaneous
  Country: ES (occurrence: ES)
  Receive Date: 20180307
  Receipt Date: 20180307
  Transmission Date: 20180509
  Serious: Yes (Other)
  Sender: FDA-Public Use
  Company Number: ES-ABBVIE-18P-144-2270775-00

PATIENT
  Age: 21 Day
  Sex: Female

DRUGS (3)
  1. DEPAKINE [Suspect]
     Active Substance: VALPROATE SODIUM
     Indication: EPILEPSY
     Route: 058
     Dates: start: 2010, end: 2010
  2. DEPAKINE [Suspect]
     Active Substance: VALPROATE SODIUM
     Indication: SEIZURE
     Route: 058
     Dates: start: 2010, end: 2010
  3. DEPAKINE [Suspect]
     Active Substance: VALPROATE SODIUM
     Route: 058
     Dates: start: 2010, end: 2010

REACTIONS (5)
  - Liver disorder [Unknown]
  - Overdose [Unknown]
  - Ammonia increased [Unknown]
  - Nervous system disorder [Unknown]
  - Seizure [Unknown]

NARRATIVE: CASE EVENT DATE: 2010
